FAERS Safety Report 14973587 (Version 1)
Quarter: 2018Q2

REPORT INFORMATION
  Report Type: Spontaneous
  Country: DE (occurrence: DE)
  Receive Date: 20180605
  Receipt Date: 20180605
  Transmission Date: 20180711
  Serious: Yes (Hospitalization)
  Sender: FDA-Public Use
  Company Number: DE-PFIZER INC-2018203761

PATIENT
  Age: 87 Year
  Sex: Female

DRUGS (8)
  1. IBUPROFEN. [Suspect]
     Active Substance: IBUPROFEN
     Dosage: 600 MG, 2X/DAY (1-0-1-0)
  2. SIMVASTATIN. [Concomitant]
     Active Substance: SIMVASTATIN
     Dosage: 40 MG, 1X/DAY
  3. CARMEN [Concomitant]
     Active Substance: LERCANIDIPINE
     Dosage: 10 MG, 2X/DAY
  4. NOCTAMID [Concomitant]
     Active Substance: LORMETAZEPAM
  5. LOPERAMIDE [Concomitant]
     Active Substance: LOPERAMIDE
  6. VOLTAREN [Concomitant]
     Active Substance: DICLOFENAC SODIUM
  7. VALSARTAN. [Concomitant]
     Active Substance: VALSARTAN
     Dosage: 160 MG, UNK (1-0-0. 5-0)
  8. TORASEMID [Concomitant]
     Active Substance: TORSEMIDE
     Dosage: 10 MG, 1X/DAY (1-0-0-0)

REACTIONS (7)
  - Hypertension [Unknown]
  - Dizziness [Unknown]
  - Nausea [Unknown]
  - Vomiting [Unknown]
  - Restlessness [Unknown]
  - Tremor [Unknown]
  - Drug prescribing error [Unknown]
